FAERS Safety Report 6433795-6 (Version None)
Quarter: 2009Q4

REPORT INFORMATION
  Report Type: 
  Country: None (occurrence: None)
  Receive Date: 20091110
  Receipt Date: 20091015
  Transmission Date: 20100525
  Serious: No
  Sender: FDA-Public Use
  Company Number: A0810939A

PATIENT
  Age: 70 Year
  Sex: Male

DRUGS (15)
  1. ALTABAX [Suspect]
     Route: 061
     Dates: start: 20090923, end: 20090924
  2. OINTMENT [Suspect]
     Route: 061
     Dates: start: 20090901
  3. AMLODIPINE [Concomitant]
  4. AGGRENOX [Concomitant]
  5. TOPROL-XL [Concomitant]
  6. HUMALOG [Concomitant]
  7. METFORMIN HCL [Concomitant]
  8. CRESTOR [Concomitant]
  9. TRICOR [Concomitant]
  10. FISH OIL CAPSULES [Concomitant]
  11. COQ10 [Concomitant]
  12. MULTI-VITAMIN [Concomitant]
  13. UNKNOWN MEDICATION [Concomitant]
  14. CLOBETASOL PROPIONATE [Concomitant]
  15. CRYSTALLINE VIT B12 INJ [Concomitant]

REACTIONS (7)
  - APPLICATION SITE DISCHARGE [None]
  - APPLICATION SITE DISCOMFORT [None]
  - APPLICATION SITE ERYTHEMA [None]
  - APPLICATION SITE INFECTION [None]
  - APPLICATION SITE INFLAMMATION [None]
  - APPLICATION SITE PAIN [None]
  - APPLICATION SITE WARMTH [None]
